FAERS Safety Report 24200996 (Version 1)
Quarter: 2024Q3

REPORT INFORMATION
  Report Type: Spontaneous
  Country: DE (occurrence: DE)
  Receive Date: 20240812
  Receipt Date: 20240812
  Transmission Date: 20241016
  Serious: Yes (Other)
  Sender: MYLAN
  Company Number: DE-CAREFORSONS-DE2024SONSSPN002

PATIENT
  Age: 25 Year
  Sex: Male

DRUGS (1)
  1. FINASTERIDE [Suspect]
     Active Substance: FINASTERIDE
     Indication: Product used for unknown indication
     Dosage: 1 MILLIGRAM
     Route: 065

REACTIONS (2)
  - Erectile dysfunction [Unknown]
  - Loss of libido [Unknown]
